FAERS Safety Report 13408114 (Version 2)
Quarter: 2017Q2

REPORT INFORMATION
  Report Type: Spontaneous
  Country: US (occurrence: US)
  Receive Date: 20170406
  Receipt Date: 20170418
  Transmission Date: 20170830
  Serious: Yes (Hospitalization)
  Sender: FDA-Public Use
  Company Number: US-ASTRAZENECA-2017SE35102

PATIENT
  Age: 26 Year
  Sex: Male
  Weight: 80.3 kg

DRUGS (12)
  1. LISINOPRIL. [Suspect]
     Active Substance: LISINOPRIL
     Route: 048
  2. PREDNISONE. [Concomitant]
     Active Substance: PREDNISONE
  3. TEMAZEPAM. [Concomitant]
     Active Substance: TEMAZEPAM
     Indication: SLEEP DISORDER
     Route: 048
  4. SYMBICORT [Suspect]
     Active Substance: BUDESONIDE\FORMOTEROL FUMARATE DIHYDRATE
     Indication: CHRONIC OBSTRUCTIVE PULMONARY DISEASE
     Dosage: 160/ 4.5, 2 PUFFS TWICE A DAY
     Route: 055
     Dates: start: 2011
  5. DALIRESP [Suspect]
     Active Substance: ROFLUMILAST
     Route: 048
  6. PAROXETINE. [Concomitant]
     Active Substance: PAROXETINE
     Indication: DEPRESSION
     Dosage: GENERIC FOR PAXIL, WAS ON 10 AND WAS INCREASED TO 40MG DAILY
     Route: 048
  7. CLONAZEPAM. [Concomitant]
     Active Substance: CLONAZEPAM
     Indication: PANIC ATTACK
     Route: 048
  8. SYMBICORT [Suspect]
     Active Substance: BUDESONIDE\FORMOTEROL FUMARATE DIHYDRATE
     Indication: EMPHYSEMA
     Dosage: 160/ 4.5, 2 PUFFS TWICE A DAY
     Route: 055
     Dates: start: 2011
  9. METOPROLOL SUCCINATE. [Suspect]
     Active Substance: METOPROLOL SUCCINATE
     Indication: BLOOD PRESSURE ABNORMAL
     Route: 048
  10. HYDROCHLOROTHIAZIDE. [Concomitant]
     Active Substance: HYDROCHLOROTHIAZIDE
     Indication: DIURETIC THERAPY
     Route: 048
  11. SPIRIVA RESPIMAT [Concomitant]
     Active Substance: TIOTROPIUM BROMIDE
     Indication: CHRONIC OBSTRUCTIVE PULMONARY DISEASE
     Dosage: 2 PUFFS DAILY (2.5MCG)
     Route: 055
     Dates: start: 2011
  12. CLONAZEPAM. [Concomitant]
     Active Substance: CLONAZEPAM
     Indication: ANXIETY
     Route: 048

REACTIONS (18)
  - Insomnia [Unknown]
  - Chronic obstructive pulmonary disease [Unknown]
  - Peroneal nerve palsy [Unknown]
  - Dyspnoea [Unknown]
  - Oral candidiasis [Recovered/Resolved]
  - Therapeutic response shortened [Unknown]
  - Bronchitis [Unknown]
  - Somnambulism [Unknown]
  - Hypoaesthesia [Unknown]
  - Respiratory syncytial virus infection [Unknown]
  - Body height decreased [Unknown]
  - Oxygen saturation decreased [Unknown]
  - Cataract [Unknown]
  - Pneumonia [Unknown]
  - Malaise [Unknown]
  - Heart rate increased [Unknown]
  - Intervertebral disc disorder [Unknown]
  - Cough [Unknown]

NARRATIVE: CASE EVENT DATE: 1978
